FAERS Safety Report 10177369 (Version 1)
Quarter: 2014Q2

REPORT INFORMATION
  Report Type: Spontaneous
  Country: US (occurrence: US)
  Receive Date: 20140516
  Receipt Date: 20140516
  Transmission Date: 20141212
  Serious: No
  Sender: FDA-Public Use
  Company Number: US-TEVA-478200USA

PATIENT
  Sex: Female

DRUGS (9)
  1. NUVIGIL [Suspect]
     Indication: FATIGUE
     Route: 048
  2. NUVIGIL [Suspect]
     Route: 048
  3. COPAXONE [Concomitant]
     Indication: MULTIPLE SCLEROSIS
  4. SYNTHROID [Concomitant]
     Indication: HYPOTHYROIDISM
  5. WELLBUTRIN [Concomitant]
     Indication: AFFECTIVE DISORDER
  6. OXYCODONE [Concomitant]
     Indication: PAIN
  7. TOPIRAMATE [Concomitant]
     Indication: MIGRAINE
  8. FENTANYL [Concomitant]
     Indication: PAIN
  9. VITAMIN D [Concomitant]
     Indication: VITAMIN D DEFICIENCY

REACTIONS (1)
  - Stomatitis [Recovered/Resolved]
